FAERS Safety Report 4808721-3 (Version None)
Quarter: 2005Q4

REPORT INFORMATION
  Report Type: 
  Country: None (occurrence: None)
  Receive Date: 20051021
  Receipt Date: 20051201
  Transmission Date: 20060501
  Serious: No
  Sender: FDA-Public Use
  Company Number: DE_041214845

PATIENT
  Age: 19 Year
  Sex: Male

DRUGS (2)
  1. ZYPREXA [Suspect]
     Indication: SCHIZOAFFECTIVE DISORDER
     Dosage: 30 MG DAY
     Route: 048
     Dates: start: 20030601
  2. VALPROATE SODIUM [Concomitant]

REACTIONS (6)
  - BLOOD CREATINE PHOSPHOKINASE INCREASED [None]
  - BLOOD CREATINE PHOSPHOKINASE MB INCREASED [None]
  - INFECTION [None]
  - MUSCLE RIGIDITY [None]
  - PRESCRIBED OVERDOSE [None]
  - TROPONIN I INCREASED [None]
